FAERS Safety Report 15362069 (Version 2)
Quarter: 2018Q3

REPORT INFORMATION
  Report Type: Report from Study
  Country: US (occurrence: US)
  Receive Date: 20180907
  Receipt Date: 20180926
  Transmission Date: 20181010
  Serious: Yes (Hospitalization)
  Sender: FDA-Public Use
  Company Number: US-IPSEN BIOPHARMACEUTICALS, INC.-2018-13332

PATIENT
  Sex: Male

DRUGS (1)
  1. SOMATULINE DEPOT [Suspect]
     Active Substance: LANREOTIDE ACETATE
     Indication: ACROMEGALY
     Dosage: 120 MG
     Route: 065

REACTIONS (6)
  - Arthralgia [Unknown]
  - Pyrexia [Unknown]
  - Condition aggravated [Unknown]
  - Adrenal disorder [Not Recovered/Not Resolved]
  - Pneumonia [Unknown]
  - Inappropriate schedule of drug administration [Unknown]
